FAERS Safety Report 7363417-1 (Version None)
Quarter: 2011Q1

REPORT INFORMATION
  Report Type: 
  Country: None (occurrence: None)
  Receive Date: 20110321
  Receipt Date: 20110310
  Transmission Date: 20110831
  Serious: Yes (Life-Threatening, Hospitalization)
  Sender: FDA-Public Use
  Company Number: PHHY2010JP69336

PATIENT
  Sex: Female
  Weight: 61 kg

DRUGS (6)
  1. GLYBURIDE [Concomitant]
     Dosage: 1.25 MG, UNK
     Route: 048
     Dates: start: 20071130
  2. AMLODIPINE [Concomitant]
     Indication: HYPERTENSION
     Dosage: 2.5 MG, UNK
     Route: 048
     Dates: start: 20080212, end: 20100307
  3. VALSARTAN [Suspect]
     Dosage: 40 MG, QD
     Route: 048
     Dates: start: 20080125, end: 20081203
  4. ACTOS [Concomitant]
     Dosage: 15 MG, UNK
     Route: 048
     Dates: start: 20071130, end: 20100413
  5. VALSARTAN [Suspect]
     Dosage: 20 MG, BID
     Route: 048
     Dates: start: 20081204
  6. LIVALO KOWA [Concomitant]
     Dosage: 2 MG, UNK
     Route: 048
     Dates: start: 20071130

REACTIONS (3)
  - BLOOD PRESSURE DIASTOLIC DECREASED [None]
  - ANGINA PECTORIS [None]
  - BREAST CANCER [None]
